FAERS Safety Report 20400223 (Version 1)
Quarter: 2022Q1

REPORT INFORMATION
  Report Type: Spontaneous
  Country: US (occurrence: US)
  Receive Date: 20220131
  Receipt Date: 20220131
  Transmission Date: 20220423
  Serious: Yes (Other)
  Sender: FDA-Public Use
  Company Number: US-AMGEN-USASP2022013682

PATIENT
  Age: 61 Year
  Sex: Female

DRUGS (21)
  1. OTEZLA [Suspect]
     Active Substance: APREMILAST
     Indication: Psoriatic arthropathy
     Dosage: 30 MILLIGRAM, BID
     Route: 048
  2. ALENDRONATE [Concomitant]
     Active Substance: ALENDRONATE SODIUM
  3. ALPRAZOLAM [Concomitant]
     Active Substance: ALPRAZOLAM
  4. ASPIRIN [Concomitant]
     Active Substance: ASPIRIN
  5. AZULFIDINE [Concomitant]
     Active Substance: SULFASALAZINE
  6. CELECOXIB [Concomitant]
     Active Substance: CELECOXIB
  7. CHANTIX [Concomitant]
     Active Substance: VARENICLINE TARTRATE
  8. CLOBETASOL [Concomitant]
     Active Substance: CLOBETASOL
  9. PHENYTOIN SODIUM [Concomitant]
     Active Substance: PHENYTOIN SODIUM
  10. DULOXETINE [Concomitant]
     Active Substance: DULOXETINE
  11. FAMOTIDINE [Concomitant]
     Active Substance: FAMOTIDINE
  12. KEPPRA XR [Concomitant]
     Active Substance: LEVETIRACETAM
  13. LAMOTRIGINE [Concomitant]
     Active Substance: LAMOTRIGINE
  14. LANTUS [Concomitant]
     Active Substance: INSULIN GLARGINE
  15. OMEPRAZOLE [Concomitant]
     Active Substance: OMEPRAZOLE
  16. PRAVASTATIN [Concomitant]
     Active Substance: PRAVASTATIN
  17. ROSUVASTATIN [Concomitant]
     Active Substance: ROSUVASTATIN
  18. SF 5000 PLUS [Concomitant]
     Active Substance: SODIUM FLUORIDE
  19. SULFASALAZINE DELAYED-RELEASE [Concomitant]
     Active Substance: SULFASALAZINE
  20. TRULICITY [Concomitant]
     Active Substance: DULAGLUTIDE
  21. VITAMIN D3 [Concomitant]
     Active Substance: CHOLECALCIFEROL

REACTIONS (3)
  - Psoriatic arthropathy [Unknown]
  - Renal stone removal [Unknown]
  - Product dose omission issue [Unknown]

NARRATIVE: CASE EVENT DATE: 20211224
